FAERS Safety Report 4431706-6 (Version None)
Quarter: 2004Q3

REPORT INFORMATION
  Report Type: 
  Country: None (occurrence: None)
  Receive Date: 20040818
  Receipt Date: 20040804
  Transmission Date: 20050211
  Serious: Yes (Disabling, Other)
  Sender: FDA-Public Use
  Company Number: USA040874602

PATIENT
  Age: 54 Year
  Sex: Male
  Weight: 114 kg

DRUGS (1)
  1. HUMULIN-HUMAN NPH INSULIN (RDNA) (HUMAN INSULIN (RD [Suspect]
     Indication: DIABETES MELLITUS
     Dates: start: 19860101, end: 19960101

REACTIONS (7)
  - BLINDNESS [None]
  - BLOOD GLUCOSE INCREASED [None]
  - CEREBROVASCULAR ACCIDENT [None]
  - CORONARY ARTERY OCCLUSION [None]
  - NEUROPATHIC ARTHROPATHY [None]
  - RENAL FAILURE [None]
  - STRESS SYMPTOMS [None]
